FAERS Safety Report 9775029 (Version 1)
Quarter: 2013Q4

REPORT INFORMATION
  Report Type: Spontaneous
  Country: US (occurrence: None)
  Receive Date: 20131218
  Receipt Date: 20131218
  Transmission Date: 20140711
  Serious: Yes (Hospitalization)
  Sender: FDA-Public Use
  Company Number: 2017941

PATIENT
  Age: 70 Year
  Sex: Female
  Weight: 85.82 kg

DRUGS (4)
  1. LIDOCAINE HYDROCHLORIDE [Suspect]
     Indication: PREMEDICATION
     Route: 058
     Dates: start: 20131001, end: 20131001
  2. LIDOCAINE HYDROCHLORIDE [Suspect]
     Indication: ANAESTHESIA PROCEDURE
     Route: 058
     Dates: start: 20131001, end: 20131001
  3. ATIVAN [Concomitant]
  4. DEMEROL [Concomitant]

REACTIONS (6)
  - Hyperhidrosis [None]
  - Hypotension [None]
  - Heart rate decreased [None]
  - Nausea [None]
  - Disorientation [None]
  - Depressed level of consciousness [None]
